FAERS Safety Report 13804734 (Version 3)
Quarter: 2017Q4

REPORT INFORMATION
  Report Type: Spontaneous
  Country: US (occurrence: US)
  Receive Date: 20170728
  Receipt Date: 20171115
  Transmission Date: 20180320
  Serious: No
  Sender: FDA-Public Use
  Company Number: US-PFIZER INC-2017322878

PATIENT
  Age: 56 Year
  Sex: Male
  Weight: 114.29 kg

DRUGS (1)
  1. XELJANZ [Suspect]
     Active Substance: TOFACITINIB CITRATE
     Indication: RHEUMATOID ARTHRITIS
     Dosage: 5 MG, 2X/DAY
     Route: 048
     Dates: start: 201705

REACTIONS (4)
  - Pain [Unknown]
  - Thyroid disorder [Unknown]
  - Fatigue [Unknown]
  - Blood pressure fluctuation [Unknown]
